FAERS Safety Report 17467319 (Version 1)
Quarter: 2020Q1

REPORT INFORMATION
  Report Type: Spontaneous
  Country: US (occurrence: US)
  Receive Date: 20200227
  Receipt Date: 20200227
  Transmission Date: 20200409
  Serious: No
  Sender: FDA-Public Use
  Company Number: US-PFIZER INC-2020084954

PATIENT
  Age: 74 Year
  Sex: Female
  Weight: 105.7 kg

DRUGS (4)
  1. MIDAZOLAM HYDROCHLORIDE. [Suspect]
     Active Substance: MIDAZOLAM HYDROCHLORIDE
     Indication: SEDATION
     Dosage: 2 MG, UNK
     Dates: start: 20200224
  2. FENTANYL CITRATE. [Suspect]
     Active Substance: FENTANYL CITRATE
     Indication: SEDATION
     Dosage: 50 UG, UNK
     Dates: start: 20200224
  3. DIAZEPAM. [Suspect]
     Active Substance: DIAZEPAM
     Dosage: 5 MG, UNK
  4. LORAZEPAM. [Concomitant]
     Active Substance: LORAZEPAM
     Indication: ANXIETY
     Dosage: 0.5 MG, AS NEEDED (2MG BY 0.5MG ONCE A DAY BY MOUTH AS NEEDED.)
     Route: 048
     Dates: start: 201908

REACTIONS (1)
  - Drug ineffective [Unknown]

NARRATIVE: CASE EVENT DATE: 20200224
